FAERS Safety Report 3720997 (Version 2)
Quarter: 2020Q3

REPORT INFORMATION
  Report Type: Spontaneous
  Country: AU (occurrence: None)
  Receive Date: 20011005
  Receipt Date: 20011107
  Transmission Date: 20201105
  Serious: Yes (Hospitalization)
  Sender: FDA-Public Use
  Company Number: PHHO2001AU07677

PATIENT
  Age: 23 Year
  Sex: Male
  Weight: 80 kg

DRUGS (31)
  1. ZANTAC [Suspect]
     Active Substance: RANITIDINE HYDROCHLORIDE
     Indication: GASTRIC ULCER
     Dates: start: 20010901
  2. DILTIAZEM. [Suspect]
     Active Substance: DILTIAZEM
     Indication: HYPERTENSION
     Dates: start: 20010908
  3. SODIUM POLYSTYRENE SULFONATE. [Suspect]
     Active Substance: SODIUM POLYSTYRENE SULFONATE
     Indication: BLOOD POTASSIUM INCREASED
     Dates: start: 20010913, end: 20010915
  4. PROPOFOL. [Suspect]
     Active Substance: PROPOFOL
     Indication: ANAESTHESIA
     Dates: start: 20010908, end: 20010908
  5. ISOFLURANE. [Suspect]
     Active Substance: ISOFLURANE
     Indication: ANAESTHESIA
     Dates: start: 20010908, end: 20010908
  6. ATROPINE. [Suspect]
     Active Substance: ATROPINE
     Indication: ANAESTHESIA
     Dates: start: 20010908, end: 20010908
  7. MYCOPHENOLATE MOFETIL. [Suspect]
     Active Substance: MYCOPHENOLATE MOFETIL
     Indication: RENAL TRANSPLANT
     Dosage: 2 CAPSULES DAILY, ORAL
     Route: 048
     Dates: start: 20010908, end: 20010913
  8. METHYLPREDNISOLONE (METHYLPREDNISOLONE) [Suspect]
     Active Substance: METHYLPREDNISOLONE
     Indication: RENAL TRANSPLANT
     Dosage: 1 G/DAY, INTRAVENOUS
     Route: 042
     Dates: start: 20010908, end: 20010908
  9. MAXOLON [Suspect]
     Active Substance: METOCLOPRAMIDE HYDROCHLORIDE
     Indication: PROPHYLAXIS
     Dates: start: 20010909, end: 20010909
  10. FERROUS SULFATE. [Suspect]
     Active Substance: FERROUS SULFATE
     Indication: BLOOD IRON ABNORMAL
     Dates: start: 20010918
  11. FLUCLOXACILLIN SODIUM MONOHYDRATE [Suspect]
     Active Substance: FLUCLOXACILLIN SODIUM MONOHYDRATE
     Indication: PROPHYLAXIS
     Dates: start: 20010908, end: 20010908
  12. MYCOSTATIN [Suspect]
     Active Substance: NYSTATIN
     Indication: ANTIFUNGAL PROPHYLAXIS
     Dates: start: 20010909, end: 20010918
  13. ALUMINUM HYDROXIDE GEL, DRIED [Suspect]
     Active Substance: ALUMINUM HYDROXIDE
     Indication: GASTROOESOPHAGEAL REFLUX DISEASE
     Dates: start: 20010909, end: 20010909
  14. MORPHINE [Suspect]
     Active Substance: MORPHINE
     Indication: ANALGESIC THERAPY
     Dates: start: 20010908, end: 20010912
  15. PETHIDINE [Suspect]
     Active Substance: MEPERIDINE
     Indication: ANALGESIC THERAPY
     Dates: start: 20010913, end: 20010913
  16. INSULIN NOS [Suspect]
     Active Substance: INSULIN NOS
     Indication: BLOOD GLUCOSE INCREASED
     Dates: start: 20010909, end: 20010912
  17. ASPIRIN (ACETYLSALICYLIC ACID) [Suspect]
     Active Substance: ASPIRIN
     Indication: THROMBOSIS PROPHYLAXIS
     Dates: start: 20010918
  18. TRIMETHOPRIM. [Suspect]
     Active Substance: TRIMETHOPRIM
     Indication: PROPHYLAXIS
     Dates: start: 20010918
  19. IRBESARTAN. [Suspect]
     Active Substance: IRBESARTAN
     Indication: HYPERTENSION
     Dates: end: 20010909
  20. IRBESARTAN. [Suspect]
     Active Substance: IRBESARTAN
     Indication: HYPERTENSION
     Dates: end: 20010909
  21. AMPHOTERICIN B. [Suspect]
     Active Substance: AMPHOTERICIN B
     Indication: ANTIFUNGAL PROPHYLAXIS
     Dates: start: 20010909, end: 20010913
  22. EPHEDRINE. [Suspect]
     Active Substance: EPHEDRINE
     Indication: ANAESTHESIA
     Dates: start: 20010908, end: 20010908
  23. NEOSTIGMINE. [Suspect]
     Active Substance: NEOSTIGMINE METHYLSULFATE
     Indication: ANAESTHESIA
     Dates: start: 20010908, end: 20010908
  24. NEORAL [Suspect]
     Active Substance: CYCLOSPORINE
     Indication: RENAL TRANSPLANT
     Dosage: SEE IMAGE
     Route: 048
     Dates: start: 20010910, end: 20010913
  25. PREDNISONE. [Suspect]
     Active Substance: PREDNISONE
     Indication: RENAL TRANSPLANT
     Dosage: 25 MG/DAY, ORAL
     Route: 048
     Dates: start: 20010909, end: 20010913
  26. LASIX [Suspect]
     Active Substance: FUROSEMIDE
     Dates: start: 20010909, end: 20010909
  27. ACETAMINOPHEN. [Suspect]
     Active Substance: ACETAMINOPHEN
     Indication: ANALGESIC THERAPY
     Dates: start: 20010910, end: 20010916
  28. TEMAZEPAM. [Suspect]
     Active Substance: TEMAZEPAM
     Indication: INSOMNIA
     Dates: start: 20010908, end: 20010916
  29. MIDAZOLAM HYDROCHLORIDE. [Suspect]
     Active Substance: MIDAZOLAM HYDROCHLORIDE
     Indication: ANAESTHESIA
     Dates: start: 20010908, end: 20010908
  30. ATRACURIUM [Suspect]
     Active Substance: ATRACURIUM
     Indication: ANAESTHESIA
     Dates: start: 20010908, end: 20010908
  31. DEXTROSE. [Suspect]
     Active Substance: DEXTROSE
     Indication: HYPERKALAEMIA
     Dates: start: 20010908, end: 20010908

REACTIONS (6)
  - Transplant rejection [None]
  - Renal infarct [None]
  - Renal artery thrombosis [None]
  - Complications of transplant surgery [None]
  - Blood creatinine increased [None]
  - Ureteric obstruction [None]

NARRATIVE: CASE EVENT DATE: 20010913
